FAERS Safety Report 6285096-7 (Version None)
Quarter: 2009Q3

REPORT INFORMATION
  Report Type: 
  Country: None (occurrence: None)
  Receive Date: 20090727
  Receipt Date: 20090717
  Transmission Date: 20100115
  Serious: Yes (Other)
  Sender: FDA-Public Use
  Company Number: JP-MERCK-0907USA00287

PATIENT
  Age: 66 Year
  Sex: Male

DRUGS (7)
  1. ZETIA [Suspect]
     Indication: HYPERLIPIDAEMIA
     Route: 048
     Dates: start: 20090217, end: 20090221
  2. BLOPRESS [Suspect]
     Indication: MYOCARDIAL INFARCTION
     Route: 048
     Dates: start: 20090217, end: 20090221
  3. ASPIRIN [Concomitant]
     Route: 065
     Dates: start: 20070725
  4. ATORVASTATIN CALCIUM [Concomitant]
     Route: 065
     Dates: start: 20070725
  5. CARVEDILOL [Concomitant]
     Route: 065
     Dates: start: 20070725
  6. INDAPAMIDE [Concomitant]
     Route: 065
     Dates: start: 20070725
  7. GLIMEPIRIDE [Concomitant]
     Route: 065
     Dates: start: 20070725

REACTIONS (3)
  - ALTERED STATE OF CONSCIOUSNESS [None]
  - LISTLESS [None]
  - MALAISE [None]
